FAERS Safety Report 21913977 (Version 1)
Quarter: 2023Q1

REPORT INFORMATION
  Report Type: Spontaneous
  Country: US (occurrence: US)
  Receive Date: 20230125
  Receipt Date: 20230125
  Transmission Date: 20230418
  Serious: No
  Sender: FDA-Public Use
  Company Number: US-ALLERGAN-2224870US

PATIENT
  Sex: Male

DRUGS (1)
  1. BOTOX [Suspect]
     Active Substance: ONABOTULINUMTOXINA
     Indication: Psoriatic arthropathy
     Dosage: UNK UNK, SINGLE

REACTIONS (3)
  - Off label use [Unknown]
  - Cough [Not Recovered/Not Resolved]
  - Malaise [Unknown]
